FAERS Safety Report 7641404-3 (Version None)
Quarter: 2011Q3

REPORT INFORMATION
  Report Type: 
  Country: None (occurrence: None)
  Receive Date: 20110728
  Receipt Date: 20110725
  Transmission Date: 20111222
  Serious: Yes (Other)
  Sender: FDA-Public Use
  Company Number: AR-PFIZER INC-2011169930

PATIENT
  Sex: Female

DRUGS (1)
  1. VARENICLINE TARTRATE [Suspect]
     Indication: TOBACCO USER
     Dosage: 1 MG, 2X/DAY
     Dates: start: 20110713

REACTIONS (3)
  - HEPATIC PAIN [None]
  - CONSTIPATION [None]
  - ABDOMINAL DISTENSION [None]
